FAERS Safety Report 9761230 (Version 1)
Quarter: 2013Q4

REPORT INFORMATION
  Report Type: Spontaneous
  Country: US (occurrence: US)
  Receive Date: 20131216
  Receipt Date: 20131216
  Transmission Date: 20140711
  Serious: Yes (Other)
  Sender: FDA-Public Use
  Company Number: US-PFIZER INC-2013359647

PATIENT
  Age: 54 Year
  Sex: Female
  Weight: 90.7 kg

DRUGS (4)
  1. NORVASC [Suspect]
     Indication: HYPERTENSION
     Dosage: 20 MG, DAILY
  2. LIPITOR [Suspect]
     Indication: BLOOD CHOLESTEROL ABNORMAL
     Dosage: 20 MG, DAILY
     Dates: end: 2013
  3. NOVOLOG [Concomitant]
     Indication: DIABETES MELLITUS
     Dosage: 18 IU, 2X/DAY
  4. LANTUS [Concomitant]
     Indication: DIABETES MELLITUS
     Dosage: 27 IU, 2X/DAY

REACTIONS (3)
  - Blindness [Recovering/Resolving]
  - Renal disorder [Unknown]
  - Arthritis [Unknown]
